FAERS Safety Report 13662699 (Version 1)
Quarter: 2017Q2

REPORT INFORMATION
  Report Type: Spontaneous
  Country: US (occurrence: US)
  Receive Date: 20170616
  Receipt Date: 20170616
  Transmission Date: 20170830
  Serious: No
  Sender: FDA-Public Use
  Company Number: None

PATIENT

DRUGS (1)
  1. CIPROFLOXACIN HYDROCHLORIDE. [Suspect]
     Active Substance: CIPROFLOXACIN HYDROCHLORIDE
     Dosage: ?          QUANTITY:THING?.I N IT .\.;?

REACTIONS (3)
  - Feeling cold [None]
  - Blood urine present [None]
  - Fatigue [None]

NARRATIVE: CASE EVENT DATE: 20160921
